FAERS Safety Report 7828424-0 (Version None)
Quarter: 2011Q4

REPORT INFORMATION
  Report Type: 
  Country: None (occurrence: None)
  Receive Date: 20111020
  Receipt Date: 20111005
  Transmission Date: 20120403
  Serious: Yes (Other)
  Sender: FDA-Public Use
  Company Number: US-ENDO PHARMACEUTICALS INC.-OPER20110222

PATIENT
  Sex: Female
  Weight: 73.548 kg

DRUGS (1)
  1. OPANA ER [Suspect]
     Indication: FIBROMYALGIA
     Route: 048
     Dates: start: 20110119

REACTIONS (1)
  - DRUG ABUSE [None]
